FAERS Safety Report 16251293 (Version 2)
Quarter: 2019Q2

REPORT INFORMATION
  Report Type: Spontaneous
  Country: NL (occurrence: NL)
  Receive Date: 20190429
  Receipt Date: 20190531
  Transmission Date: 20190711
  Serious: Yes (Disabling)
  Sender: FDA-Public Use
  Company Number: NL-ROCHE-2307754

PATIENT
  Sex: Female
  Weight: 76 kg

DRUGS (1)
  1. XOLAIR [Suspect]
     Active Substance: OMALIZUMAB
     Indication: ASTHMA
     Route: 058
     Dates: start: 2016

REACTIONS (2)
  - Maternal exposure during pregnancy [Unknown]
  - Nerve injury [Unknown]
